FAERS Safety Report 9507899 (Version 2)
Quarter: 2013Q3

REPORT INFORMATION
  Report Type: Report from Study
  Country: US (occurrence: US)
  Receive Date: 20130909
  Receipt Date: 20130909
  Transmission Date: 20140515
  Serious: Yes (Hospitalization)
  Sender: FDA-Public Use
  Company Number: US-BAYER-2013-065130

PATIENT
  Age: 60 Year
  Sex: Male

DRUGS (4)
  1. STIVARGA [Suspect]
     Indication: COLON CANCER
     Dosage: DAILY DOSE 160 MG (DOSE REGIMEN: 4X40)
     Route: 048
     Dates: start: 20130417
  2. STIVARGA [Suspect]
     Indication: COLON CANCER
     Dosage: DOSE ADJUSTED (10 DAYS WITH 1 WEEK OF BREAK AND 11 DAYS WITH 1 WEEK OF BREAK)
  3. MORPHINE [Suspect]
     Indication: BACK PAIN
  4. PERCOCET [Suspect]
     Indication: BACK PAIN

REACTIONS (4)
  - Constipation [None]
  - Dehydration [None]
  - Hypophagia [None]
  - Back pain [None]
